FAERS Safety Report 17532190 (Version 3)
Quarter: 2020Q2

REPORT INFORMATION
  Report Type: Spontaneous
  Country: BR (occurrence: BR)
  Receive Date: 20200312
  Receipt Date: 20200625
  Transmission Date: 20200713
  Serious: Yes (Hospitalization, Other)
  Sender: FDA-Public Use
  Company Number: BR-GLAXOSMITHKLINE-BR2018GSK232371

PATIENT
  Age: 22 Year
  Sex: Female
  Weight: 53 kg

DRUGS (1)
  1. NUCALA [Suspect]
     Active Substance: MEPOLIZUMAB
     Indication: ASTHMA
     Dosage: 100 MG, UNK
     Dates: start: 20181205, end: 201907

REACTIONS (20)
  - COVID-19 [Unknown]
  - Sinusitis [Unknown]
  - Chest discomfort [Unknown]
  - Respiratory fatigue [Unknown]
  - Postural orthostatic tachycardia syndrome [Unknown]
  - Pyrexia [Unknown]
  - Pain [Unknown]
  - Inappropriate schedule of product administration [Recovered/Resolved]
  - Heart rate increased [Unknown]
  - Cough [Unknown]
  - Urinary tract infection [Recovered/Resolved]
  - Asthma [Unknown]
  - Headache [Unknown]
  - Oropharyngeal pain [Unknown]
  - Viral infection [Unknown]
  - Product dose omission [Recovered/Resolved]
  - Asthenia [Unknown]
  - Asthmatic crisis [Unknown]
  - Malaise [Unknown]
  - Tremor [Unknown]

NARRATIVE: CASE EVENT DATE: 20200510
